FAERS Safety Report 4324600-2 (Version None)
Quarter: 2004Q1

REPORT INFORMATION
  Report Type: 
  Country: None (occurrence: None)
  Receive Date: 20040322
  Receipt Date: 20040310
  Transmission Date: 20041129
  Serious: Yes (Hospitalization)
  Sender: FDA-Public Use
  Company Number: OMPQ-NO-0403S-0195

PATIENT
  Age: 64 Year
  Sex: Male
  Weight: 70 kg

DRUGS (7)
  1. OMNIPAQUE 70 [Suspect]
     Indication: OESOPHAGEAL CARCINOMA
     Dosage: SINGLE DOSE, I.V.
     Route: 042
     Dates: start: 20040218, end: 20040218
  2. CISPLATIN [Concomitant]
  3. FAMOTIDINE [Concomitant]
  4. CEFAZOLIN SODIUM (CEFAMEZIN) [Concomitant]
  5. FLUOROURACIL [Concomitant]
  6. FILGRASTIM (GRAN) [Concomitant]
  7. BETAMIPRON, PANIPENEM (CARBENIN) [Concomitant]

REACTIONS (7)
  - BLOOD CREATININE INCREASED [None]
  - BODY TEMPERATURE INCREASED [None]
  - HAEMODIALYSIS [None]
  - MELAENA [None]
  - RENAL DISORDER [None]
  - SHOCK HAEMORRHAGIC [None]
  - URINE OUTPUT DECREASED [None]
